FAERS Safety Report 11230220 (Version 2)
Quarter: 2015Q3

REPORT INFORMATION
  Report Type: Spontaneous
  Country: US (occurrence: US)
  Receive Date: 20150701
  Receipt Date: 20150803
  Transmission Date: 20151125
  Serious: Yes (Hospitalization, Other)
  Sender: FDA-Public Use
  Company Number: US-AUROBINDO-AUR-APL-2015-05519

PATIENT
  Age: 54 Year
  Sex: Male

DRUGS (3)
  1. RIZATRIPTAN TABLET 5MG [Suspect]
     Active Substance: RIZATRIPTAN
     Indication: MIGRAINE
     Dosage: UNK, AS NECESSARY
     Route: 065
  2. TOPIRAMATE. [Concomitant]
     Active Substance: TOPIRAMATE
     Indication: MIGRAINE PROPHYLAXIS
     Route: 065
  3. RIZATRIPTAN TABLET 5MG [Suspect]
     Active Substance: RIZATRIPTAN
     Dosage: UNK, AS NECESSARY
     Route: 065

REACTIONS (12)
  - Renal infarct [Recovered/Resolved]
  - Costovertebral angle tenderness [Recovered/Resolved]
  - Nausea [Recovered/Resolved]
  - Red blood cell sedimentation rate increased [Recovered/Resolved]
  - Prothrombin time prolonged [Recovered/Resolved]
  - Self-medication [Recovered/Resolved]
  - Vomiting [Recovered/Resolved]
  - C-reactive protein increased [Recovered/Resolved]
  - Dehydration [Recovered/Resolved]
  - Blood lactate dehydrogenase increased [Recovered/Resolved]
  - Abdominal pain [Recovered/Resolved]
  - Activated partial thromboplastin time prolonged [Recovered/Resolved]
